FAERS Safety Report 10606636 (Version 2)
Quarter: 2014Q4

REPORT INFORMATION
  Report Type: Spontaneous
  Country: US (occurrence: US)
  Receive Date: 20141125
  Receipt Date: 20141125
  Transmission Date: 20150529
  Serious: Yes (Hospitalization)
  Sender: FDA-Public Use
  Company Number: US-BEH-2014046377

PATIENT
  Sex: Female

DRUGS (1)
  1. HIZENTRA [Suspect]
     Active Substance: HUMAN IMMUNOGLOBULIN G
     Route: 058

REACTIONS (7)
  - Dysphagia [Unknown]
  - Ataxia [Unknown]
  - Feeding disorder [Unknown]
  - Gait disturbance [Unknown]
  - Visual impairment [Unknown]
  - Headache [Unknown]
  - Dehydration [Unknown]
